FAERS Safety Report 15113114 (Version 3)
Quarter: 2018Q4

REPORT INFORMATION
  Report Type: Spontaneous
  Country: US (occurrence: US)
  Receive Date: 20180706
  Receipt Date: 20181102
  Transmission Date: 20190204
  Serious: Yes (Other)
  Sender: FDA-Public Use
  Company Number: US-BRISTOL-MYERS SQUIBB COMPANY-BMS-2018-061810

PATIENT
  Age: 71 Year
  Sex: Female
  Weight: 57.59 kg

DRUGS (4)
  1. SYNTHROID [Concomitant]
     Active Substance: LEVOTHYROXINE SODIUM
     Indication: PRODUCT USED FOR UNKNOWN INDICATION
     Dosage: 1 DF, QD
     Route: 065
  2. DHA [Concomitant]
     Active Substance: DIETARY SUPPLEMENT
     Indication: PRODUCT USED FOR UNKNOWN INDICATION
     Dosage: UNK
     Route: 065
  3. METOPROLOL TARTRATE. [Concomitant]
     Active Substance: METOPROLOL TARTRATE
     Indication: PRODUCT USED FOR UNKNOWN INDICATION
     Dosage: 1 DF, BID
     Route: 065
     Dates: start: 201806
  4. ELIQUIS [Suspect]
     Active Substance: APIXABAN
     Indication: CEREBROVASCULAR ACCIDENT PROPHYLAXIS
     Dosage: 5 MG, BID
     Route: 048
     Dates: start: 20171208

REACTIONS (17)
  - Heart valve incompetence [Unknown]
  - Pain in extremity [Unknown]
  - Epistaxis [Unknown]
  - Renal disorder [Unknown]
  - Muscular weakness [Unknown]
  - Fluid retention [Unknown]
  - Rash [Unknown]
  - Cardiac murmur [Unknown]
  - Cough [Not Recovered/Not Resolved]
  - Hypoaesthesia [Unknown]
  - Asthenia [Unknown]
  - Contusion [Unknown]
  - Atrial fibrillation [Unknown]
  - Weight increased [Unknown]
  - Paraesthesia [Unknown]
  - Memory impairment [Unknown]
  - Myalgia [Unknown]

NARRATIVE: CASE EVENT DATE: 2018
